FAERS Safety Report 16180917 (Version 14)
Quarter: 2025Q2

REPORT INFORMATION
  Report Type: Report from Study
  Country: US (occurrence: US)
  Receive Date: 20190410
  Receipt Date: 20250617
  Transmission Date: 20250717
  Serious: Yes (Hospitalization, Other)
  Sender: TAKEDA
  Company Number: US-TAKEDA-2019TUS020674

PATIENT
  Age: 77 Year
  Sex: Female
  Weight: 75 kg

DRUGS (28)
  1. IXAZOMIB [Suspect]
     Active Substance: IXAZOMIB
     Indication: Plasma cell myeloma
  2. IXAZOMIB [Suspect]
     Active Substance: IXAZOMIB
     Indication: Breast cancer metastatic
  3. IXAZOMIB [Suspect]
     Active Substance: IXAZOMIB
  4. IXAZOMIB [Suspect]
     Active Substance: IXAZOMIB
  5. IXAZOMIB [Suspect]
     Active Substance: IXAZOMIB
  6. IXAZOMIB [Suspect]
     Active Substance: IXAZOMIB
  7. IXAZOMIB [Suspect]
     Active Substance: IXAZOMIB
  8. REVLIMID [Suspect]
     Active Substance: LENALIDOMIDE
     Indication: Product used for unknown indication
  9. DARZALEX [Suspect]
     Active Substance: DARATUMUMAB
     Indication: Product used for unknown indication
  10. DEXAMETHASONE [Concomitant]
     Active Substance: DEXAMETHASONE
  11. CALCIUM [Concomitant]
     Active Substance: CALCIUM
  12. ACETAMINOPHEN [Concomitant]
     Active Substance: ACETAMINOPHEN
  13. ACYCLOVIR [Concomitant]
     Active Substance: ACYCLOVIR
  14. MINERALS\VITAMINS [Concomitant]
     Active Substance: MINERALS\VITAMINS
  15. CETIRIZINE [Concomitant]
     Active Substance: CETIRIZINE HYDROCHLORIDE
  16. CINNAMON [Concomitant]
     Active Substance: CINNAMON
  17. DARZALEX FASPRO [Concomitant]
     Active Substance: DARATUMUMAB\HYALURONIDASE-FIHJ
  18. ELIQUIS [Concomitant]
     Active Substance: APIXABAN
  19. FAMOTIDINE [Concomitant]
     Active Substance: FAMOTIDINE
  20. IMODIUM [Concomitant]
     Active Substance: LOPERAMIDE HYDROCHLORIDE
  21. MAGNESIUM [Concomitant]
     Active Substance: MAGNESIUM
  22. MECLIZINE [Concomitant]
     Active Substance: MECLIZINE HYDROCHLORIDE
  23. MELATONIN [Concomitant]
     Active Substance: MELATONIN
  24. METOPROLOL SUCCINATE [Concomitant]
     Active Substance: METOPROLOL SUCCINATE
  25. ONDANSETRON [Concomitant]
     Active Substance: ONDANSETRON
  26. VITAMIN B12 [Concomitant]
     Active Substance: CYANOCOBALAMIN
  27. VITAMIN D3 [Concomitant]
     Active Substance: CHOLECALCIFEROL
  28. HERBALS\TURMERIC [Concomitant]
     Active Substance: HERBALS\TURMERIC

REACTIONS (29)
  - Renal failure [Unknown]
  - Thrombosis [Unknown]
  - Red blood cell count decreased [Unknown]
  - Blood immunoglobulin M increased [Unknown]
  - Back injury [Unknown]
  - COVID-19 [Unknown]
  - Haemoglobin decreased [Unknown]
  - Insomnia [Unknown]
  - Pneumonia [Unknown]
  - Constipation [Unknown]
  - Neuropathy peripheral [Unknown]
  - Diarrhoea [Not Recovered/Not Resolved]
  - Platelet count abnormal [Unknown]
  - Vertigo [Unknown]
  - Cystitis [Unknown]
  - Inner ear disorder [Unknown]
  - Dyspepsia [Unknown]
  - Eye pain [Unknown]
  - Arthritis [Unknown]
  - Urinary tract infection [Unknown]
  - Product use issue [Unknown]
  - Off label use [Unknown]
  - Headache [Unknown]
  - Dizziness [Unknown]
  - White blood cell count decreased [Unknown]
  - Fatigue [Unknown]
  - Platelet count decreased [Not Recovered/Not Resolved]
  - Nausea [Unknown]
  - Vomiting [Unknown]

NARRATIVE: CASE EVENT DATE: 20220301
